FAERS Safety Report 12548629 (Version 1)
Quarter: 2016Q3

REPORT INFORMATION
  Report Type: Spontaneous
  Country: US (occurrence: US)
  Receive Date: 20160712
  Receipt Date: 20160712
  Transmission Date: 20161109
  Serious: No
  Sender: FDA-Public Use
  Company Number: US-TEVA-583611USA

PATIENT
  Sex: Female

DRUGS (2)
  1. LAMOTRIGINE. [Suspect]
     Active Substance: LAMOTRIGINE
     Route: 065
  2. VIMPAT [Suspect]
     Active Substance: LACOSAMIDE
     Route: 065

REACTIONS (3)
  - Pruritus [Unknown]
  - Dyspnoea [Unknown]
  - Urticaria [Unknown]
